FAERS Safety Report 9759690 (Version 2)
Quarter: 2013Q4

REPORT INFORMATION
  Report Type: Spontaneous
  Country: US (occurrence: US)
  Receive Date: 20131216
  Receipt Date: 20131216
  Transmission Date: 20140711
  Serious: Yes (Hospitalization)
  Sender: FDA-Public Use
  Company Number: US-GILEAD-2010-0028689

PATIENT
  Age: 74 Year
  Sex: Female

DRUGS (5)
  1. LETAIRIS [Suspect]
     Indication: PULMONARY ARTERIAL HYPERTENSION
     Route: 048
     Dates: start: 20100320, end: 20100413
  2. DILTIAZEM [Concomitant]
  3. CRESTOR [Concomitant]
  4. PROTONIX [Concomitant]
  5. VITAMIN D [Concomitant]

REACTIONS (1)
  - Local swelling [Recovered/Resolved]
